FAERS Safety Report 6081890-6 (Version None)
Quarter: 2009Q1

REPORT INFORMATION
  Report Type: 
  Country: None (occurrence: None)
  Receive Date: 20090126
  Receipt Date: 20080505
  Transmission Date: 20090719
  Serious: Yes (Other)
  Sender: FDA-Public Use
  Company Number: WAES 0805USA00835

PATIENT
  Age: 75 Year
  Sex: Male

DRUGS (1)
  1. INVANZ [Suspect]

REACTIONS (3)
  - CONVULSION [None]
  - PYREXIA [None]
  - RESPIRATORY DISTRESS [None]
